FAERS Safety Report 8522224-4 (Version None)
Quarter: 2012Q3

REPORT INFORMATION
  Report Type: 
  Country: None (occurrence: None)
  Receive Date: 20120719
  Receipt Date: 20120713
  Transmission Date: 20120928
  Serious: Yes (Hospitalization)
  Sender: FDA-Public Use
  Company Number: IT-SANOFI-AVENTIS-2012SA049962

PATIENT
  Age: 52 Year
  Sex: Female

DRUGS (5)
  1. EPIRUBICIN [Concomitant]
  2. TINSET [Concomitant]
     Indication: PREMEDICATION
  3. TAXOTERE [Suspect]
     Indication: BREAST CANCER
     Route: 042
     Dates: start: 20120606, end: 20120606
  4. PREDNISONE TAB [Concomitant]
     Indication: PREMEDICATION
  5. CYCLOPHOSPHAMIDE [Concomitant]
     Indication: BREAST CANCER

REACTIONS (3)
  - TREMOR [None]
  - LARYNGOSPASM [None]
  - DYSPNOEA [None]
